FAERS Safety Report 5455034-5 (Version None)
Quarter: 2007Q3

REPORT INFORMATION
  Report Type: 
  Country: None (occurrence: None)
  Receive Date: 20070918
  Receipt Date: 20070913
  Transmission Date: 20080115
  Serious: Yes (Death, Hospitalization, Other)
  Sender: FDA-Public Use
  Company Number: PHEH2007US09696

PATIENT
  Age: 39 Year
  Sex: Female

DRUGS (6)
  1. EXJADE [Suspect]
     Indication: SICKLE CELL ANAEMIA
     Dosage: 500 MG, QD
     Route: 048
     Dates: start: 20060629, end: 20070531
  2. FOLIC ACID [Concomitant]
     Dosage: 2 MG, QD
     Route: 048
  3. HYDROCHLOROTHIAZIDE [Concomitant]
  4. PHENERGAN HCL [Concomitant]
  5. MACRODANTIN [Concomitant]
  6. AMITRIPTYLINE HCL [Concomitant]

REACTIONS (49)
  - ABDOMINAL DISTENSION [None]
  - ABDOMINAL PAIN LOWER [None]
  - ALANINE AMINOTRANSFERASE INCREASED [None]
  - AMMONIA INCREASED [None]
  - ASCITES [None]
  - ASPARTATE AMINOTRANSFERASE INCREASED [None]
  - ASTHENIA [None]
  - BACK PAIN [None]
  - BLOOD BILIRUBIN INCREASED [None]
  - BLOOD POTASSIUM DECREASED [None]
  - CARDIAC MURMUR [None]
  - CEREBRAL INFARCTION [None]
  - CHROMATURIA [None]
  - COMPUTERISED TOMOGRAM ABNORMAL [None]
  - CONSTIPATION [None]
  - COUGH [None]
  - DEAFNESS [None]
  - DECREASED APPETITE [None]
  - DEPRESSED LEVEL OF CONSCIOUSNESS [None]
  - DISCOMFORT [None]
  - DYSPNOEA [None]
  - DYSPNOEA EXERTIONAL [None]
  - DYSURIA [None]
  - ECHOCARDIOGRAM ABNORMAL [None]
  - HAEMATOCRIT DECREASED [None]
  - HAEMOGLOBIN DECREASED [None]
  - HAEMOSIDEROSIS [None]
  - HEPATIC CIRRHOSIS [None]
  - HEPATIC ENCEPHALOPATHY [None]
  - HEPATIC FAILURE [None]
  - HYPOALBUMINAEMIA [None]
  - INTERNATIONAL NORMALISED RATIO INCREASED [None]
  - INTERSTITIAL LUNG DISEASE [None]
  - IRON BINDING CAPACITY TOTAL INCREASED [None]
  - MALAISE [None]
  - MENTAL STATUS CHANGES [None]
  - MUSCULAR WEAKNESS [None]
  - NUCLEAR MAGNETIC RESONANCE IMAGING BRAIN ABNORMAL [None]
  - OCULAR ICTERUS [None]
  - OXYGEN SATURATION DECREASED [None]
  - PAIN IN EXTREMITY [None]
  - PARACENTESIS ABDOMEN [None]
  - PERITONITIS BACTERIAL [None]
  - PULMONARY OEDEMA [None]
  - RETICULOCYTE COUNT INCREASED [None]
  - RETROPERITONEAL LYMPHADENOPATHY [None]
  - SICKLE CELL ANAEMIA [None]
  - SKIN ULCER [None]
  - SOMNOLENCE [None]
